FAERS Safety Report 22522263 (Version 1)
Quarter: 2023Q2

REPORT INFORMATION
  Report Type: Spontaneous
  Country: KR (occurrence: KR)
  Receive Date: 20230605
  Receipt Date: 20230605
  Transmission Date: 20230721
  Serious: Yes (Hospitalization)
  Sender: FDA-Public Use
  Company Number: KR-ORGANON-O2306KOR000116

PATIENT
  Age: 61 Year
  Sex: Female
  Weight: 69.9 kg

DRUGS (3)
  1. COZAAR [Suspect]
     Active Substance: LOSARTAN POTASSIUM
     Indication: Essential hypertension
     Dosage: 100 MILLIGRAM, QD
     Route: 048
     Dates: start: 20190131
  2. ATORVASTATIN\EZETIMIBE [Concomitant]
     Active Substance: ATORVASTATIN\EZETIMIBE
     Indication: Hyperlipidaemia
     Dosage: 1 DOSAGE FORM (FORMULATION), QD, FORMULATION: FILM-COATED TABLET
     Route: 048
     Dates: start: 20190131
  3. BAZEDOXIFENE ACETATE [Concomitant]
     Active Substance: BAZEDOXIFENE ACETATE
     Indication: Osteoporosis
     Dosage: 20 MILLIGRAM, QD
     Route: 048
     Dates: start: 20190131

REACTIONS (2)
  - Tendonitis [Recovered/Resolved]
  - Cellulitis [Recovered/Resolved]

NARRATIVE: CASE EVENT DATE: 20190303
